FAERS Safety Report 7758990-5 (Version None)
Quarter: 2011Q3

REPORT INFORMATION
  Report Type: 
  Country: None (occurrence: None)
  Receive Date: 20110915
  Receipt Date: 20110901
  Transmission Date: 20111222
  Serious: Yes (Death)
  Sender: FDA-Public Use
  Company Number: TPA2011A05462

PATIENT
  Sex: Female

DRUGS (1)
  1. EDARBI [Suspect]
     Indication: HYPERTENSION
     Dosage: 80 MG

REACTIONS (1)
  - DEATH [None]
